FAERS Safety Report 4850873-3 (Version None)
Quarter: 2005Q4

REPORT INFORMATION
  Report Type: 
  Country: None (occurrence: None)
  Receive Date: 20051208
  Receipt Date: 20051130
  Transmission Date: 20060501
  Serious: Yes (Other)
  Sender: FDA-Public Use
  Company Number: 2004239563US

PATIENT
  Age: 80 Year
  Sex: Female

DRUGS (5)
  1. CELEBREX [Suspect]
     Indication: ILL-DEFINED DISORDER
     Dates: end: 20041001
  2. BEXTRA [Suspect]
     Indication: ARTHRALGIA
     Dosage: 20 MG (10 MG, 2 IN 1 D)
     Dates: start: 20041001
  3. ADVIL [Suspect]
     Indication: ARTHRALGIA
  4. ALEVE [Suspect]
     Indication: ARTHRALGIA
  5. ACETAMINOPHEN [Suspect]
     Indication: ARTHRALGIA

REACTIONS (17)
  - ABDOMINAL DISCOMFORT [None]
  - ABDOMINAL PAIN UPPER [None]
  - ASTHENIA [None]
  - BACK PAIN [None]
  - BURNING SENSATION [None]
  - DECREASED ACTIVITY [None]
  - DIARRHOEA [None]
  - DIFFICULTY IN WALKING [None]
  - DRUG INEFFECTIVE [None]
  - FALL [None]
  - FEELING ABNORMAL [None]
  - MOBILITY DECREASED [None]
  - NAUSEA [None]
  - RASH [None]
  - SLEEP DISORDER [None]
  - SPINAL FRACTURE [None]
  - TREATMENT NONCOMPLIANCE [None]
